FAERS Safety Report 12383651 (Version 2)
Quarter: 2016Q2

REPORT INFORMATION
  Report Type: Report from Study
  Country: JP (occurrence: JP)
  Receive Date: 20160519
  Receipt Date: 20160614
  Transmission Date: 20160815
  Serious: Yes (Hospitalization)
  Sender: FDA-Public Use
  Company Number: JP-AMGEN-JPNNI2016062519

PATIENT
  Sex: Male
  Weight: 46 kg

DRUGS (24)
  1. DENOSUMAB [Suspect]
     Active Substance: DENOSUMAB
     Dosage: 120 MG, UNK
     Route: 058
     Dates: start: 20140616
  2. DENOSUMAB [Suspect]
     Active Substance: DENOSUMAB
     Dosage: 120 MG, UNK
     Route: 058
     Dates: start: 20150722
  3. PREDONINE [Concomitant]
     Active Substance: PREDNISOLONE\PREDNISOLONE ACETATE\PREDNISOLONE SODIUM SUCCINATE
     Dosage: 2 DF, QD
     Route: 065
     Dates: start: 20140908, end: 20150708
  4. DENOSUMAB [Suspect]
     Active Substance: DENOSUMAB
     Dosage: 120 MG, UNK
     Route: 058
     Dates: start: 20150916
  5. DENOSUMAB [Suspect]
     Active Substance: DENOSUMAB
     Dosage: 120 MG, UNK
     Route: 058
     Dates: start: 20150204
  6. DENOSUMAB [Suspect]
     Active Substance: DENOSUMAB
     Dosage: 120 MG, UNK
     Route: 058
     Dates: start: 20150304
  7. FENTOS [Concomitant]
     Active Substance: FENTANYL
     Dosage: 4 MG, QD
     Route: 050
     Dates: start: 20140801, end: 20151218
  8. DENOSUMAB [Suspect]
     Active Substance: DENOSUMAB
     Dosage: 120 MG, UNK
     Route: 058
     Dates: start: 20141112
  9. DENOSUMAB [Suspect]
     Active Substance: DENOSUMAB
     Dosage: 120 MG, UNK
     Route: 058
     Dates: start: 20150819
  10. ZYTIGA [Concomitant]
     Active Substance: ABIRATERONE ACETATE
     Dosage: 4 DF, QD
     Route: 065
     Dates: start: 20140908, end: 20150708
  11. XTANDI [Concomitant]
     Active Substance: ENZALUTAMIDE
     Dosage: 2 DF, QD
     Route: 065
     Dates: start: 20150709, end: 20151009
  12. DENOSUMAB [Suspect]
     Active Substance: DENOSUMAB
     Dosage: 120 MG, UNK
     Route: 058
     Dates: start: 20140917
  13. DENOSUMAB [Suspect]
     Active Substance: DENOSUMAB
     Dosage: 120 MG, UNK
     Route: 058
     Dates: start: 20141015
  14. DENOSUMAB [Suspect]
     Active Substance: DENOSUMAB
     Dosage: 120 MG, UNK
     Route: 058
     Dates: start: 20150107
  15. DENOSUMAB [Suspect]
     Active Substance: DENOSUMAB
     Dosage: 120 MG, UNK
     Route: 058
     Dates: start: 20150624
  16. ZOLADEX [Concomitant]
     Active Substance: GOSERELIN ACETATE
     Dosage: UNK, Q4WK
     Route: 065
     Dates: start: 20140228
  17. DENOSUMAB [Suspect]
     Active Substance: DENOSUMAB
     Indication: METASTASES TO BONE
     Dosage: 120 MG, UNK
     Route: 058
     Dates: start: 20140228
  18. DENOSUMAB [Suspect]
     Active Substance: DENOSUMAB
     Dosage: 120 MG, UNK
     Route: 058
     Dates: start: 20140519
  19. DENOSUMAB [Suspect]
     Active Substance: DENOSUMAB
     Dosage: 120 MG, UNK
     Route: 058
     Dates: start: 20140714
  20. DENOSUMAB [Suspect]
     Active Substance: DENOSUMAB
     Dosage: 120 MG, UNK
     Route: 058
     Dates: start: 20141210
  21. OPSO [Concomitant]
     Active Substance: MORPHINE HYDROCHLORIDE
     Dosage: 5 MG, AS NECESSARY
     Route: 048
     Dates: start: 20150709, end: 20151218
  22. DENOSUMAB [Suspect]
     Active Substance: DENOSUMAB
     Dosage: 120 MG, UNK
     Route: 058
     Dates: start: 20150401
  23. DENOSUMAB [Suspect]
     Active Substance: DENOSUMAB
     Dosage: 120 MG, UNK
     Route: 058
     Dates: start: 20150527
  24. DENOTAS [Concomitant]
     Active Substance: CALCIUM CARBONATE\CHOLECALCIFEROL\MAGNESIUM CARBONATE
     Dosage: 2 DF, QD
     Route: 048
     Dates: start: 20140228, end: 20151009

REACTIONS (1)
  - Bladder cancer [Recovering/Resolving]
